FAERS Safety Report 5911405-1 (Version None)
Quarter: 2008Q4

REPORT INFORMATION
  Report Type: 
  Country: None (occurrence: None)
  Receive Date: 20081002
  Receipt Date: 20080923
  Transmission Date: 20090506
  Serious: Yes (Other)
  Sender: FDA-Public Use
  Company Number: 2008-03528

PATIENT
  Age: 70 Year
  Sex: Male
  Weight: 46 kg

DRUGS (1)
  1. VELCADE [Suspect]
     Indication: HEAD AND NECK CANCER
     Dosage: 1.3 MG/M2, IV BOLUS
     Route: 040
     Dates: start: 20070709, end: 20080103

REACTIONS (1)
  - HYPOALBUMINAEMIA [None]
